FAERS Safety Report 18946060 (Version 2)
Quarter: 2021Q1

REPORT INFORMATION
  Report Type: Spontaneous
  Country: AU (occurrence: AU)
  Receive Date: 20210226
  Receipt Date: 20210301
  Transmission Date: 20210420
  Serious: Yes (Other)
  Sender: FDA-Public Use
  Company Number: AU-BAXTER-2021BAX003490

PATIENT
  Age: 62 Year
  Sex: Male
  Weight: 74 kg

DRUGS (6)
  1. SODIUM CHLORIDE (VIAFLO) 500ML [Suspect]
     Active Substance: SODIUM CHLORIDE
     Indication: MEDICATION DILUTION
     Route: 042
     Dates: start: 20210127
  2. DOCETAXEL ACCORD [Suspect]
     Active Substance: DOCETAXEL
     Indication: PROSTATE CANCER
     Route: 042
     Dates: start: 20210127
  3. DOCETAXEL ACCORD [Suspect]
     Active Substance: DOCETAXEL
     Dosage: SECOND DOSE
     Route: 042
     Dates: start: 20210216
  4. SODIUM CHLORIDE (VIAFLO) 500ML [Suspect]
     Active Substance: SODIUM CHLORIDE
     Dosage: SECOND DOSE
     Route: 042
     Dates: start: 20210216
  5. SODIUM CHLORIDE (VIAFLO) 500ML [Suspect]
     Active Substance: SODIUM CHLORIDE
     Dosage: DOSE RE?INTRODUCED
     Route: 042
     Dates: start: 202102
  6. DOCETAXEL ACCORD [Suspect]
     Active Substance: DOCETAXEL
     Dosage: DOSE RE?INTRODUCED
     Route: 042
     Dates: start: 202102

REACTIONS (2)
  - Muscle spasms [Recovered/Resolved]
  - Back pain [Recovered/Resolved]

NARRATIVE: CASE EVENT DATE: 20210216
